FAERS Safety Report 4595920-1 (Version None)
Quarter: 2005Q1

REPORT INFORMATION
  Report Type: 
  Country: None (occurrence: None)
  Receive Date: 20050224
  Receipt Date: 20050224
  Transmission Date: 20050727
  Serious: Yes (Hospitalization)
  Sender: FDA-Public Use
  Company Number: None

PATIENT
  Age: 56 Year
  Sex: Male
  Weight: 79 kg

DRUGS (1)
  1. ARSENIC TRIOXIDE [Suspect]
     Indication: MALIGNANT MELANOMA
     Dosage: .32MG/KG/DAY    DAILY LOAD X 4   INTRAVENOU
     Route: 042
     Dates: start: 20050222, end: 20050222

REACTIONS (5)
  - BLOOD PRESSURE DIASTOLIC DECREASED [None]
  - COMA [None]
  - CYANOSIS [None]
  - MYOCLONUS [None]
  - OXYGEN SATURATION DECREASED [None]
